FAERS Safety Report 15142159 (Version 1)
Quarter: 2018Q3

REPORT INFORMATION
  Report Type: Spontaneous
  Country: US (occurrence: US)
  Receive Date: 20180713
  Receipt Date: 20180713
  Transmission Date: 20181010
  Serious: No
  Sender: FDA-Public Use
  Company Number: US-ASTELLAS-2017US027968

PATIENT
  Age: 78 Year
  Sex: Male

DRUGS (3)
  1. TAMULOSIN [Suspect]
     Active Substance: TAMSULOSIN
     Indication: PROSTATIC DISORDER
     Dosage: UNK UNK, UNKNOWN FREQ.
     Route: 065
  2. TAMULOSIN [Suspect]
     Active Substance: TAMSULOSIN
     Dosage: UNK, UNKNOWN FREQ.
     Route: 065
  3. MYRBETRIQ [Suspect]
     Active Substance: MIRABEGRON
     Indication: NOCTURIA
     Route: 048

REACTIONS (4)
  - Neuropathy peripheral [Unknown]
  - Dysuria [Recovered/Resolved]
  - Intentional product misuse [Unknown]
  - Drug prescribing error [Unknown]
